FAERS Safety Report 5622186-3 (Version None)
Quarter: 2008Q1

REPORT INFORMATION
  Report Type: 
  Country: None (occurrence: None)
  Receive Date: 20080206
  Receipt Date: 20080131
  Transmission Date: 20080703
  Serious: Yes (Other)
  Sender: FDA-Public Use
  Company Number: LTI2007A00141

PATIENT
  Age: 63 Year
  Sex: Female

DRUGS (6)
  1. ACTOS [Suspect]
     Indication: TYPE 2 DIABETES MELLITUS
     Dosage: 30 MG (30 MG, 1 IN 1 D)
     Route: 048
     Dates: start: 20060830
  2. PAROXETINE HCL [Concomitant]
  3. GLUCOPHAGE [Concomitant]
  4. DAONIL (GLIBENCLAMIDE) [Concomitant]
  5. ACARBOSE [Concomitant]
  6. ZESTORETIC [Concomitant]

REACTIONS (2)
  - DYSPNOEA EXERTIONAL [None]
  - WEIGHT INCREASED [None]
